FAERS Safety Report 20966291 (Version 1)
Quarter: 2022Q2

REPORT INFORMATION
  Report Type: Spontaneous
  Country: US (occurrence: US)
  Receive Date: 20220616
  Receipt Date: 20220616
  Transmission Date: 20220721
  Serious: Yes (Other)
  Sender: FDA-Public Use
  Company Number: US-AMGEN-USASP2022099649

PATIENT
  Age: 51 Year
  Sex: Female

DRUGS (3)
  1. XGEVA [Suspect]
     Active Substance: DENOSUMAB
     Indication: Hypercalcaemia of malignancy
     Dosage: 120 MILLIGRAM, QWK (3 DOSES)
     Route: 065
  2. XGEVA [Suspect]
     Active Substance: DENOSUMAB
     Dosage: UNK, QMO
     Route: 058
  3. ZOLEDRONIC ACID [Suspect]
     Active Substance: ZOLEDRONIC ACID
     Indication: Hypercalcaemia of malignancy
     Dosage: 4 MILLIGRAM (2 DOSES)
     Route: 065

REACTIONS (6)
  - Gastrointestinal haemorrhage [Unknown]
  - Drug ineffective [Unknown]
  - Liver function test increased [Unknown]
  - Hypercalcaemia [Recovered/Resolved]
  - Parathyroid hormone-related protein increased [Unknown]
  - Hypophosphataemia [Unknown]
